FAERS Safety Report 21699964 (Version 25)
Quarter: 2025Q3

REPORT INFORMATION
  Report Type: Report from Study
  Country: US (occurrence: US)
  Receive Date: 20221208
  Receipt Date: 20250929
  Transmission Date: 20251020
  Serious: Yes (Hospitalization, Other)
  Sender: TAKEDA
  Company Number: US-TAKEDA-2022TUS071968

PATIENT
  Age: 61 Year
  Sex: Female
  Weight: 122 kg

DRUGS (49)
  1. GLASSIA [Suspect]
     Active Substance: .ALPHA.1-PROTEINASE INHIBITOR HUMAN
     Indication: Alpha-1 antitrypsin deficiency
     Dosage: 60 MILLIGRAM/KG, 1/WEEK
     Dates: start: 20210825
  2. GLASSIA [Suspect]
     Active Substance: .ALPHA.1-PROTEINASE INHIBITOR HUMAN
     Indication: Hereditary angioedema
     Dosage: 60 MILLIGRAM/KG, QD
  3. GLASSIA [Suspect]
     Active Substance: .ALPHA.1-PROTEINASE INHIBITOR HUMAN
     Dosage: 60 MILLIGRAM/KG, 1/WEEK
     Dates: start: 20211213
  4. GLASSIA [Suspect]
     Active Substance: .ALPHA.1-PROTEINASE INHIBITOR HUMAN
     Dosage: 60 MILLIGRAM/KG, 1/WEEK
     Dates: start: 20230801
  5. GLASSIA [Suspect]
     Active Substance: .ALPHA.1-PROTEINASE INHIBITOR HUMAN
     Dosage: 60 MILLIGRAM/KG, 1/WEEK
  6. FARXIGA [Suspect]
     Active Substance: DAPAGLIFLOZIN PROPANEDIOL
     Indication: Product used for unknown indication
  7. DIPHENHYDRAMINE HYDROCHLORIDE [Concomitant]
     Active Substance: DIPHENHYDRAMINE HYDROCHLORIDE
  8. HEPARIN [Concomitant]
     Active Substance: HEPARIN SODIUM
  9. LEVOTHYROXINE SODIUM [Concomitant]
     Active Substance: LEVOTHYROXINE SODIUM
  10. VITAMIN D3 [Concomitant]
     Active Substance: CHOLECALCIFEROL
  11. SODIUM CHLORIDE [Concomitant]
     Active Substance: SODIUM CHLORIDE
  12. EPINEPHRINE [Concomitant]
     Active Substance: EPINEPHRINE
  13. STIOLTO RESPIMAT [Concomitant]
     Active Substance: OLODATEROL HYDROCHLORIDE\TIOTROPIUM BROMIDE MONOHYDRATE
  14. ATORVASTATIN CALCIUM [Concomitant]
     Active Substance: ATORVASTATIN CALCIUM
  15. POTASSIUM CHLORIDE [Concomitant]
     Active Substance: POTASSIUM CHLORIDE
  16. CALCIUM CITRATE\CHOLECALCIFEROL [Concomitant]
     Active Substance: CALCIUM CITRATE\CHOLECALCIFEROL
  17. PREDNISONE [Concomitant]
     Active Substance: PREDNISONE
  18. GABAPENTIN [Concomitant]
     Active Substance: GABAPENTIN
  19. OMEPRAZOLE [Concomitant]
     Active Substance: OMEPRAZOLE
  20. REMICADE [Concomitant]
     Active Substance: INFLIXIMAB
  21. BYSTOLIC [Concomitant]
     Active Substance: NEBIVOLOL HYDROCHLORIDE
  22. BUMETANIDE [Concomitant]
     Active Substance: BUMETANIDE
  23. FERROUS SULFATE [Concomitant]
     Active Substance: FERROUS SULFATE
  24. VITAMIN B12 [Concomitant]
     Active Substance: CYANOCOBALAMIN
  25. ACETAMINOPHEN [Concomitant]
     Active Substance: ACETAMINOPHEN
  26. ASPIRIN [Concomitant]
     Active Substance: ASPIRIN
  27. ADEMPAS [Concomitant]
     Active Substance: RIOCIGUAT
  28. PLAVIX [Concomitant]
     Active Substance: CLOPIDOGREL BISULFATE
  29. ENTRESTO [Concomitant]
     Active Substance: SACUBITRIL\VALSARTAN
  30. POTASSIUM [Concomitant]
     Active Substance: POTASSIUM
  31. VITAMIN D2 [Concomitant]
     Active Substance: ERGOCALCIFEROL
  32. CORLANOR [Concomitant]
     Active Substance: IVABRADINE HYDROCHLORIDE
  33. VITAMIN B [Concomitant]
     Active Substance: VITAMIN B
  34. MAGNESIUM [Concomitant]
     Active Substance: MAGNESIUM
  35. ELIQUIS [Concomitant]
     Active Substance: APIXABAN
  36. BISOPROLOL FUMARATE [Concomitant]
     Active Substance: BISOPROLOL FUMARATE
  37. HYOSCYAMINE SULFATE [Concomitant]
     Active Substance: HYOSCYAMINE SULFATE
  38. METAMUCIL [Concomitant]
     Active Substance: PLANTAGO SEED
  39. SENNA S [Concomitant]
     Active Substance: DOCUSATE SODIUM\SENNOSIDES
  40. TRAMADOL HCL [Concomitant]
     Active Substance: TRAMADOL HYDROCHLORIDE
  41. DOXYCYCLINE HYCLATE [Concomitant]
     Active Substance: DOXYCYCLINE HYCLATE
  42. VITAMIN D [Concomitant]
     Active Substance: VITAMIN D NOS
  43. PYRIDOSTIGMINE BROMIDE [Concomitant]
     Active Substance: PYRIDOSTIGMINE BROMIDE
  44. ORENCIA [Concomitant]
     Active Substance: ABATACEPT
  45. MELATONIN [Concomitant]
     Active Substance: MELATONIN
  46. AMLODIPINE BESYLATE [Concomitant]
     Active Substance: AMLODIPINE BESYLATE
  47. IPRATROPIUM BROMIDE [Concomitant]
     Active Substance: IPRATROPIUM BROMIDE
  48. ATROPINE\DIPHENOXYLATE [Concomitant]
     Active Substance: ATROPINE\DIPHENOXYLATE
  49. ONDANSETRON [Concomitant]
     Active Substance: ONDANSETRON

REACTIONS (22)
  - Haemorrhoids [Recovered/Resolved]
  - Rectal haemorrhage [Unknown]
  - Pneumonia [Unknown]
  - Renal failure [Unknown]
  - Infection [Not Recovered/Not Resolved]
  - COVID-19 [Recovering/Resolving]
  - Influenza [Unknown]
  - Nasopharyngitis [Not Recovered/Not Resolved]
  - Skin laceration [Unknown]
  - Device issue [Unknown]
  - Procedural pain [Unknown]
  - Respiratory tract infection [Recovering/Resolving]
  - Sputum discoloured [Recovering/Resolving]
  - Insurance issue [Recovering/Resolving]
  - Muscular weakness [Not Recovered/Not Resolved]
  - Product dose omission issue [Unknown]
  - Product use issue [Recovering/Resolving]
  - Product distribution issue [Unknown]
  - Urinary tract infection [Unknown]
  - Dyspnoea [Not Recovered/Not Resolved]
  - Cough [Not Recovered/Not Resolved]
  - Pain [Unknown]

NARRATIVE: CASE EVENT DATE: 20221224
